FAERS Safety Report 8908263 (Version 1)
Quarter: 2012Q4

REPORT INFORMATION
  Report Type: 
  Country: US (occurrence: US)
  Receive Date: 20121114
  Receipt Date: 20121114
  Transmission Date: 20130627
  Serious: No
  Sender: FDA-Public Use
  Company Number: US-ASTRAZENECA-2012SE79764

PATIENT
  Sex: Male

DRUGS (3)
  1. BRILINTA [Suspect]
     Dosage: TWICE A DAY
     Route: 048
     Dates: start: 2012, end: 2012
  2. BRILINTA [Suspect]
     Route: 048
     Dates: start: 2012
  3. PLAVIX [Suspect]
     Route: 048

REACTIONS (4)
  - Decreased appetite [Unknown]
  - Weight decreased [Unknown]
  - Dyspnoea [Unknown]
  - Drug ineffective [Unknown]
